FAERS Safety Report 5053703-2 (Version None)
Quarter: 2006Q3

REPORT INFORMATION
  Report Type: 
  Country: None (occurrence: None)
  Receive Date: 20060718
  Receipt Date: 20060620
  Transmission Date: 20061208
  Serious: Yes (Hospitalization)
  Sender: FDA-Public Use
  Company Number: DE-ROCHE-452493

PATIENT
  Age: 42 Year
  Sex: Female
  Weight: 98 kg

DRUGS (6)
  1. XENICAL [Suspect]
     Indication: WEIGHT CONTROL
     Route: 048
     Dates: start: 20001110, end: 20060525
  2. SIOFOR [Concomitant]
     Dosage: DOSAGE REGIMEN REPORTED AS 3 PER DAY
  3. NOVONORM [Concomitant]
     Dosage: DOSAGE REGIMEN REPORTED AS 2 PER DAY
  4. EFEROX [Concomitant]
     Dosage: DOSAGE REGIMEN REPORTED AS 1 PER DAY
  5. ALLOPURINOL [Concomitant]
     Dosage: ALLOPURINOL 100. DOSAGE REGIMEN REPORTED AS 2 PER DAY
  6. HCT [Concomitant]
     Dosage: DOSAGE REGIMEN REPORTED AS 3 PER DAY

REACTIONS (3)
  - BLISTER [None]
  - PEMPHIGOID [None]
  - RASH GENERALISED [None]
